FAERS Safety Report 15834840 (Version 1)
Quarter: 2019Q1

REPORT INFORMATION
  Report Type: Not Available
  Country: US (occurrence: US)
  Receive Date: 20190116
  Receipt Date: 20190116
  Transmission Date: 20190417
  Serious: Yes (Death)
  Sender: FDA-Public Use
  Company Number: US-C B FLEET CO INC-201809-US-002129

PATIENT
  Age: 64 Year
  Sex: Male

DRUGS (1)
  1. TETRAHYDROZOLINE HCL [Suspect]
     Active Substance: TETRAHYDROZOLINE HYDROCHLORIDE
     Indication: POISONING DELIBERATE
     Route: 048

REACTIONS (3)
  - Death [Fatal]
  - Accidental exposure to product [Fatal]
  - Poisoning deliberate [Fatal]
